FAERS Safety Report 9514016 (Version 1)
Quarter: 2013Q3

REPORT INFORMATION
  Report Type: Spontaneous
  Country: JP (occurrence: JP)
  Receive Date: 20130910
  Receipt Date: 20130910
  Transmission Date: 20140515
  Serious: Yes (Death, Hospitalization, Other)
  Sender: FDA-Public Use
  Company Number: JP-ROXANE LABORATORIES, INC.-2013-RO-01495RO

PATIENT
  Age: 54 Year
  Sex: Female

DRUGS (8)
  1. MYCOPHENOLATE MOFETIL [Suspect]
     Indication: IMMUNOSUPPRESSANT DRUG THERAPY
  2. MYCOPHENOLATE MOFETIL [Suspect]
     Indication: RENAL TRANSPLANT
  3. AZATHIOPRINE [Suspect]
     Indication: IMMUNOSUPPRESSANT DRUG THERAPY
  4. AZATHIOPRINE [Suspect]
     Indication: RENAL TRANSPLANT
  5. METHYLPREDNISOLONE [Suspect]
     Indication: IMMUNOSUPPRESSANT DRUG THERAPY
  6. METHYLPREDNISOLONE [Suspect]
     Indication: RENAL TRANSPLANT
  7. MIZORIBINE [Suspect]
     Indication: IMMUNOSUPPRESSANT DRUG THERAPY
  8. MIZORIBINE [Suspect]
     Indication: RENAL TRANSPLANT

REACTIONS (3)
  - Respiratory failure [Fatal]
  - Progressive multifocal leukoencephalopathy [Unknown]
  - Liver injury [Unknown]
